FAERS Safety Report 16400678 (Version 5)
Quarter: 2019Q4

REPORT INFORMATION
  Report Type: Report from Study
  Country: US (occurrence: US)
  Receive Date: 20190606
  Receipt Date: 20191220
  Transmission Date: 20200122
  Serious: Yes (Hospitalization, Other)
  Sender: FDA-Public Use
  Company Number: US-ACTELION-A-NJ2019-191396

PATIENT
  Sex: Female
  Weight: 63.04 kg

DRUGS (2)
  1. UPTRAVI [Suspect]
     Active Substance: SELEXIPAG
     Indication: PULMONARY ARTERIAL HYPERTENSION
     Dosage: 800 MCG, BID
     Route: 048
  2. UPTRAVI [Suspect]
     Active Substance: SELEXIPAG
     Dosage: 1600 MCG, BID
     Route: 048

REACTIONS (16)
  - Fatigue [Unknown]
  - Chest pain [Unknown]
  - Adverse event [Unknown]
  - Unevaluable event [Unknown]
  - Pulmonary arterial pressure increased [Unknown]
  - Headache [Unknown]
  - Arthralgia [Unknown]
  - Alopecia [Unknown]
  - Blood magnesium decreased [Unknown]
  - Pulmonary fibrosis [Unknown]
  - Micturition disorder [Unknown]
  - Dizziness postural [Unknown]
  - Loss of consciousness [Unknown]
  - Dyspnoea [Unknown]
  - Arterial occlusive disease [Unknown]
  - Chest discomfort [Unknown]
